FAERS Safety Report 7199640 (Version 3)
Quarter: 2013Q2

REPORT INFORMATION
  Report Type: Spontaneous
  Country: US (occurrence: US)
  Receive Date: 20091204
  Receipt Date: 20130617
  Transmission Date: 20140414
  Serious: Yes (Hospitalization)
  Sender: FDA-Public Use
  Company Number: US-BIOGENIDEC-2009BI038621

PATIENT
  Age: 57 Year
  Sex: Female

DRUGS (1)
  1. TYSABRI [Suspect]
     Indication: MULTIPLE SCLEROSIS
     Route: 042
     Dates: start: 20080908, end: 20130222

REACTIONS (9)
  - Chronic obstructive pulmonary disease [Recovered/Resolved]
  - Emphysema [Unknown]
  - Pneumonia [Recovered/Resolved with Sequelae]
  - Nasopharyngitis [Unknown]
  - Osteoporosis [Unknown]
  - Skin lesion [Not Recovered/Not Resolved]
  - Dry mouth [Recovered/Resolved]
  - Thirst [Recovered/Resolved]
  - Tooth loss [Recovered/Resolved]
